FAERS Safety Report 4562211-4 (Version None)
Quarter: 2005Q1

REPORT INFORMATION
  Report Type: 
  Country: None (occurrence: None)
  Receive Date: 20050121
  Receipt Date: 20050111
  Transmission Date: 20050727
  Serious: Yes (Death)
  Sender: FDA-Public Use
  Company Number: 2005010824

PATIENT
  Age: 63 Year
  Sex: Male

DRUGS (4)
  1. MICRONASE [Suspect]
     Indication: DIABETES MELLITUS NON-INSULIN-DEPENDENT
     Dosage: ORAL
     Route: 048
     Dates: start: 20031008, end: 20040614
  2. BLINDED THERAPY (BLINDED THERAPY) [Suspect]
     Indication: DIABETES MELLITUS NON-INSULIN-DEPENDENT
     Dates: start: 20040405, end: 20040614
  3. PRINZIDE [Concomitant]
  4. ATORVASTATIN (ATORVASTATIN) [Concomitant]

REACTIONS (14)
  - AORTIC ATHEROSCLEROSIS [None]
  - ARTERIAL OCCLUSIVE DISEASE [None]
  - CARDIOMEGALY [None]
  - CEREBRAL ATROPHY [None]
  - CIRCULATORY COLLAPSE [None]
  - CORONARY ARTERY ATHEROSCLEROSIS [None]
  - DYSPNOEA [None]
  - HEPATOMEGALY [None]
  - HYDROCEPHALUS [None]
  - NEPHROSCLEROSIS [None]
  - PHLEBOTHROMBOSIS [None]
  - PULMONARY CONGESTION [None]
  - PULMONARY EMBOLISM [None]
  - VENTRICULAR HYPERTROPHY [None]
